FAERS Safety Report 24911064 (Version 2)
Quarter: 2025Q2

REPORT INFORMATION
  Report Type: Spontaneous
  Country: US (occurrence: US)
  Receive Date: 20250131
  Receipt Date: 20250425
  Transmission Date: 20250717
  Serious: Yes (Hospitalization, Other)
  Sender: BRISTOL-MYERS SQUIBB COMPANY
  Company Number: US-BRISTOL-MYERS SQUIBB COMPANY-2025-010864

PATIENT
  Sex: Male

DRUGS (1)
  1. OPDIVO [Suspect]
     Active Substance: NIVOLUMAB
     Indication: Product used for unknown indication
     Dates: start: 20230119, end: 202405

REACTIONS (8)
  - Neuropathy peripheral [Unknown]
  - Blood thyroid stimulating hormone decreased [Recovered/Resolved]
  - Dysphagia [Unknown]
  - Cellulitis [Recovering/Resolving]
  - Hypothyroidism [Recovered/Resolved]
  - Pemphigoid [Unknown]
  - Skin infection [Unknown]
  - Pulse abnormal [Unknown]
